FAERS Safety Report 8480071-6 (Version None)
Quarter: 2012Q2

REPORT INFORMATION
  Report Type: 
  Country: None (occurrence: None)
  Receive Date: 20120629
  Receipt Date: 20120620
  Transmission Date: 20120825
  Serious: Yes (Hospitalization)
  Sender: FDA-Public Use
  Company Number: BR-ASTRAZENECA-2012SE41724

PATIENT
  Sex: Female

DRUGS (3)
  1. MEROPENEM [Suspect]
     Route: 042
     Dates: start: 20120526, end: 20120528
  2. CRESTOR [Concomitant]
     Route: 048
  3. SYNTROID [Concomitant]

REACTIONS (3)
  - URTICARIA [None]
  - RASH PRURITIC [None]
  - RASH ERYTHEMATOUS [None]
